FAERS Safety Report 14385597 (Version 2)
Quarter: 2019Q4

REPORT INFORMATION
  Report Type: Spontaneous
  Country: US (occurrence: US)
  Receive Date: 20180115
  Receipt Date: 20191029
  Transmission Date: 20200122
  Serious: Yes (Other)
  Sender: FDA-Public Use
  Company Number: US-SA-2017SA001286

PATIENT
  Age: 69 Year
  Sex: Female
  Weight: 79.37 kg

DRUGS (6)
  1. TAXOTERE [Suspect]
     Active Substance: DOCETAXEL
     Indication: BREAST CANCER FEMALE
     Dosage: 157 MG,Q3W
     Route: 042
     Dates: start: 20071218, end: 20071218
  2. CYTOXAN [Concomitant]
     Active Substance: CYCLOPHOSPHAMIDE
     Indication: BREAST CANCER FEMALE
     Dosage: UNK UNK,QCY
     Route: 065
     Dates: start: 20171218, end: 20171218
  3. TAXOTERE [Suspect]
     Active Substance: DOCETAXEL
     Dosage: 157 MG,Q3W
     Route: 042
     Dates: start: 20080220, end: 20080220
  4. CYTOXAN [Concomitant]
     Active Substance: CYCLOPHOSPHAMIDE
     Dosage: UNK
     Route: 065
     Dates: start: 20080220, end: 20080220
  5. NEOSAR [Concomitant]
     Active Substance: CYCLOPHOSPHAMIDE
     Indication: BREAST CANCER FEMALE
     Dosage: UNK
     Route: 065
  6. BENICAR [Concomitant]
     Active Substance: OLMESARTAN MEDOXOMIL
     Dosage: UNK
     Route: 065

REACTIONS (6)
  - Psychological trauma [Unknown]
  - Anxiety [Unknown]
  - Pain [Unknown]
  - Alopecia [Not Recovered/Not Resolved]
  - Impaired quality of life [Unknown]
  - Emotional distress [Unknown]

NARRATIVE: CASE EVENT DATE: 2008
